FAERS Safety Report 24020517 (Version 1)
Quarter: 2024Q2

REPORT INFORMATION
  Report Type: Spontaneous
  Country: US (occurrence: None)
  Receive Date: 20240627
  Receipt Date: 20240627
  Transmission Date: 20240716
  Serious: Yes (Disabling)
  Sender: FDA-Public Use
  Company Number: None

PATIENT
  Age: 71 Year
  Sex: Female
  Weight: 92.53 kg

DRUGS (13)
  1. MULTAQ [Suspect]
     Active Substance: DRONEDARONE
     Indication: Atrial fibrillation
     Dosage: OTHER QUANTITY : 1 PILL;?FREQUENCY : TWICE A DAY;?
     Route: 048
     Dates: start: 20240123, end: 20240509
  2. TRELEGY ELLIPTA [Concomitant]
     Active Substance: FLUTICASONE FUROATE\UMECLIDINIUM BROMIDE\VILANTEROL TRIFENATATE
  3. ELIQUIS [Concomitant]
     Active Substance: APIXABAN
  4. FLECAINIDE [Concomitant]
  5. METOPROLOL SUCCINATE [Concomitant]
     Active Substance: METOPROLOL SUCCINATE
  6. HYDROCHLOROTHIAZIDE [Concomitant]
     Active Substance: HYDROCHLOROTHIAZIDE
  7. LORAZEPAM [Concomitant]
     Active Substance: LORAZEPAM
  8. ALLEGRA [Concomitant]
     Active Substance: FEXOFENADINE HYDROCHLORIDE
  9. CENTRA-SILVER 50+ FOR WOMEN [Concomitant]
  10. NEURIVA [Concomitant]
  11. CULTURELLE [Concomitant]
     Active Substance: LACTOBACILLUS RHAMNOSUS
  12. EMERGEN C IMMUNE PLUS [Concomitant]
  13. MOVE FREE FOR JOINTS [Concomitant]

REACTIONS (10)
  - Influenza like illness [None]
  - Wheezing [None]
  - Chest discomfort [None]
  - Productive cough [None]
  - Insomnia [None]
  - Dyspnoea [None]
  - Joint swelling [None]
  - Peripheral swelling [None]
  - Joint swelling [None]
  - Nasopharyngitis [None]

NARRATIVE: CASE EVENT DATE: 20240202
